FAERS Safety Report 5474973-2 (Version None)
Quarter: 2007Q4

REPORT INFORMATION
  Report Type: 
  Country: None (occurrence: None)
  Receive Date: 20071002
  Receipt Date: 20070926
  Transmission Date: 20080405
  Serious: Yes (Hospitalization)
  Sender: FDA-Public Use
  Company Number: US-SANOFI-SYNTHELABO-F03200700180

PATIENT
  Age: 678 Month
  Sex: Female

DRUGS (4)
  1. FLUOROURACIL [Suspect]
     Indication: COLON CANCER STAGE III
     Route: 042
     Dates: start: 20070822, end: 20070822
  2. LEUCOVORIN CALCIUM [Suspect]
     Indication: COLON CANCER STAGE III
     Route: 042
     Dates: start: 20070822, end: 20070822
  3. CETUXIMAB [Suspect]
     Indication: COLON CANCER STAGE III
     Route: 042
     Dates: start: 20070822, end: 20070822
  4. OXALIPLATIN [Suspect]
     Indication: COLON CANCER STAGE III
     Route: 042
     Dates: start: 20070822, end: 20070822

REACTIONS (6)
  - CARDIO-RESPIRATORY ARREST [None]
  - DEHYDRATION [None]
  - DIARRHOEA [None]
  - HYPOKALAEMIA [None]
  - MYOCARDIAL INFARCTION [None]
  - PULMONARY EMBOLISM [None]
